FAERS Safety Report 5846837-3 (Version None)
Quarter: 2008Q3

REPORT INFORMATION
  Report Type: 
  Country: None (occurrence: None)
  Receive Date: 20080815
  Receipt Date: 20080807
  Transmission Date: 20090109
  Serious: Yes (Other)
  Sender: FDA-Public Use
  Company Number: PHHY2008DE17791

PATIENT
  Sex: Female

DRUGS (2)
  1. EXELON [Suspect]
     Indication: DEMENTIA ALZHEIMER'S TYPE
     Dosage: 4.6MG/24/HOUR
     Route: 062
     Dates: start: 20080724
  2. ARICEPT [Concomitant]
     Indication: DEMENTIA
     Dosage: 10 MG
     Route: 048

REACTIONS (6)
  - BLOOD GLUCOSE INCREASED [None]
  - GASTRIC DISORDER [None]
  - MUSCLE SPASMS [None]
  - NAUSEA [None]
  - PARAESTHESIA [None]
  - VOMITING [None]
